FAERS Safety Report 19484181 (Version 3)
Quarter: 2021Q3

REPORT INFORMATION
  Report Type: Report from Study
  Country: None (occurrence: IL)
  Receive Date: 20210701
  Receipt Date: 20210806
  Transmission Date: 20211014
  Serious: Yes (Hospitalization)
  Sender: FDA-Public Use
  Company Number: IL-ABBVIE-21P-082-3964875-00

PATIENT
  Age: 85 Year
  Sex: Female
  Weight: 74 kg

DRUGS (28)
  1. AZACITIDINE. [Suspect]
     Active Substance: AZACITIDINE
     Indication: MYELODYSPLASTIC SYNDROME
     Dosage: ON DAYS 1?5  8 + 9
     Route: 058
     Dates: start: 20201206, end: 20210513
  2. NORMALOL [Concomitant]
     Active Substance: ATENOLOL
     Indication: HYPERTENSION
     Route: 048
     Dates: start: 2004
  3. EUTHYROX [Concomitant]
     Active Substance: LEVOTHYROXINE SODIUM
     Indication: HYPOTHYROIDISM
     Route: 048
     Dates: start: 200503
  4. XAMIOL [Concomitant]
     Active Substance: BETAMETHASONE DIPROPIONATE\CALCIPOTRIENE HYDRATE
     Indication: PSORIASIS
     Route: 061
     Dates: start: 202006
  5. LACTULOSE/LAEVOLAC [Concomitant]
     Indication: CONSTIPATION
     Route: 048
     Dates: start: 2005
  6. ALLOPURINOL. [Concomitant]
     Active Substance: ALLOPURINOL
     Indication: PROPHYLAXIS
     Route: 048
     Dates: start: 20201103
  7. CEREBONIN [Concomitant]
     Indication: AMNESIA
     Route: 048
     Dates: start: 202004
  8. NEXIUM/ ESOMEPRAZOLE [Concomitant]
     Indication: GASTROOESOPHAGEAL REFLUX DISEASE
     Route: 048
     Dates: start: 200503
  9. COLLAGEN BOOST [Concomitant]
     Indication: SUPPORTIVE CARE
     Route: 048
     Dates: start: 2019
  10. PARACETAMOL [Concomitant]
     Active Substance: ACETAMINOPHEN
     Indication: BACK PAIN
     Route: 048
     Dates: start: 20210214
  11. PARACETAMOL [Concomitant]
     Active Substance: ACETAMINOPHEN
     Indication: HEADACHE
  12. STATOR/ ROSUVASTATIN [Concomitant]
     Indication: HYPERLIPIDAEMIA
     Route: 048
     Dates: start: 200503
  13. VITAMIN C [Concomitant]
     Active Substance: ASCORBIC ACID
     Indication: SUPPORTIVE CARE
     Route: 048
     Dates: start: 2019
  14. AQUA CREAM [Concomitant]
     Indication: PSORIASIS
     Route: 061
     Dates: start: 202006
  15. PROCTO GLYVENOL GEL [Concomitant]
     Indication: HAEMORRHOIDS
     Route: 061
     Dates: start: 202003
  16. PRAMIN [Concomitant]
     Indication: NAUSEA
     Route: 048
     Dates: start: 20210209
  17. ZYLOL [Concomitant]
     Indication: PROPHYLAXIS
     Route: 048
     Dates: start: 20201206
  18. FUSID [Concomitant]
     Indication: OEDEMA PERIPHERAL
     Route: 048
     Dates: start: 202004
  19. CLOPIDOGREL/ CLOOD [Concomitant]
     Indication: HYPERTENSION
     Route: 048
     Dates: start: 2004
  20. CURCUMIN C3 [Concomitant]
     Indication: SUPPORTIVE CARE
     Route: 048
     Dates: start: 2009
  21. TAVANIC [Concomitant]
     Active Substance: LEVOFLOXACIN
     Indication: INFECTION PROPHYLAXIS
     Route: 048
     Dates: start: 20210607
  22. AUGMENTIN [Concomitant]
     Active Substance: AMOXICILLIN\CLAVULANATE POTASSIUM
     Indication: INFECTION
     Route: 048
     Dates: start: 20210223
  23. VENETOCLAX. [Suspect]
     Active Substance: VENETOCLAX
     Indication: MYELODYSPLASTIC SYNDROME
     Dosage: 14 DAYS ON 14 DAYS OFF
     Route: 048
     Dates: start: 20201206, end: 20210523
  24. EZECOR/ EZETIMIBE [Concomitant]
     Indication: HYPERLIPIDAEMIA
     Route: 048
     Dates: start: 200503
  25. HEXAKAPRON [Concomitant]
     Active Substance: TRANEXAMIC ACID
     Indication: HAEMORRHAGE
     Route: 048
     Dates: start: 20210525
  26. ARTHRYL/GLUCOSAMINE SULFATE [Concomitant]
     Indication: OSTEOARTHRITIS
     Route: 048
     Dates: start: 20160818
  27. VIEPAX/ VENLAFAXINE [Concomitant]
     Indication: ANXIETY
     Route: 048
     Dates: start: 200503
  28. VABEN ?OXAZEPAM [Concomitant]
     Indication: ANXIETY
     Route: 048
     Dates: start: 202003

REACTIONS (1)
  - Epistaxis [Recovered/Resolved]

NARRATIVE: CASE EVENT DATE: 20210624
